FAERS Safety Report 22886371 (Version 4)
Quarter: 2023Q4

REPORT INFORMATION
  Report Type: Spontaneous
  Country: US (occurrence: US)
  Receive Date: 20230831
  Receipt Date: 20231011
  Transmission Date: 20240110
  Serious: No
  Sender: FDA-Public Use
  Company Number: US-JNJFOC-20230859650

PATIENT
  Age: 66 Year
  Sex: Female

DRUGS (15)
  1. STELARA [Suspect]
     Active Substance: USTEKINUMAB
     Indication: Psoriasis
     Route: 058
     Dates: start: 20220920, end: 20230823
  2. STELARA [Suspect]
     Active Substance: USTEKINUMAB
     Indication: Rheumatoid arthritis
  3. TOPIRAMATE [Concomitant]
     Active Substance: TOPIRAMATE
  4. PREDNISONE [Concomitant]
     Active Substance: PREDNISONE
  5. GUAIFENESIN [Concomitant]
     Active Substance: GUAIFENESIN
  6. BUSPIRONE [Concomitant]
     Active Substance: BUSPIRONE HYDROCHLORIDE
  7. TERBUTALINE [Concomitant]
     Active Substance: TERBUTALINE
  8. TERBINAFINE [Concomitant]
     Active Substance: TERBINAFINE
  9. TOPIRAMATE [Concomitant]
     Active Substance: TOPIRAMATE
  10. FOLIC ACID [Concomitant]
     Active Substance: FOLIC ACID
  11. AMITRIPTYLINE [Concomitant]
     Active Substance: AMITRIPTYLINE
  12. MEMANTINE [Concomitant]
     Active Substance: MEMANTINE
  13. HYDROXYCHLOROQUINE [Concomitant]
     Active Substance: HYDROXYCHLOROQUINE
  14. ACYCLOVIR [Concomitant]
     Active Substance: ACYCLOVIR
  15. CELECOXIB [Concomitant]
     Active Substance: CELECOXIB

REACTIONS (2)
  - Drug ineffective [Unknown]
  - Pain [Unknown]

NARRATIVE: CASE EVENT DATE: 20230823
